FAERS Safety Report 24607530 (Version 1)
Quarter: 2024Q4

REPORT INFORMATION
  Report Type: Spontaneous
  Country: US (occurrence: US)
  Receive Date: 20241112
  Receipt Date: 20241112
  Transmission Date: 20250115
  Serious: Yes (Other)
  Sender: RANBAXY
  Company Number: US-SUN PHARMACEUTICAL INDUSTRIES LTD-2024R1-478148

PATIENT
  Age: 71 Year
  Sex: Male

DRUGS (8)
  1. TOBRAMYCIN [Suspect]
     Active Substance: TOBRAMYCIN\TOBRAMYCIN SULFATE
     Indication: Arthritis infective
     Dosage: 2.4 GRAM
     Route: 065
  2. TOBRAMYCIN [Suspect]
     Active Substance: TOBRAMYCIN\TOBRAMYCIN SULFATE
     Dosage: 3.6 UNK
     Route: 065
  3. CEFAZOLIN [Suspect]
     Active Substance: CEFAZOLIN
     Indication: Arthritis infective
     Dosage: UNK
     Route: 042
  4. CEFAZOLIN [Suspect]
     Active Substance: CEFAZOLIN
     Dosage: 2 GRAM, EVERY 12 HOURS
     Route: 042
  5. GENTAMICIN [Suspect]
     Active Substance: GENTAMICIN
     Indication: Arthritis infective
     Dosage: 240 MILLIGRAM
     Route: 065
  6. VANCOMYCIN [Suspect]
     Active Substance: VANCOMYCIN
     Indication: Arthritis infective
     Dosage: 2 GRAM
     Route: 065
  7. VANCOMYCIN [Suspect]
     Active Substance: VANCOMYCIN
     Indication: Clostridium difficile infection
     Dosage: 125 MILLIGRAM, EVERY 12 HOURS
     Route: 048
  8. VANCOMYCIN [Suspect]
     Active Substance: VANCOMYCIN
     Dosage: 3 UNK
     Route: 065

REACTIONS (1)
  - Acute kidney injury [Unknown]
